FAERS Safety Report 8733341 (Version 3)
Quarter: 2012Q4

REPORT INFORMATION
  Report Type: 
  Country: FR (occurrence: FR)
  Receive Date: 20120821
  Receipt Date: 20120920
  Transmission Date: 20130627
  Serious: Yes (Other)
  Sender: FDA-Public Use
  Company Number: FR-GENZYME-THYR-1000721

PATIENT
  Age: 32 None
  Sex: Female
  Weight: 46 kg

DRUGS (1)
  1. THYROGEN [Suspect]
     Indication: DIAGNOSTIC PROCEDURE
     Dosage: UNK, qd
     Route: 030
     Dates: start: 20120609, end: 20120610

REACTIONS (2)
  - Pregnancy [Unknown]
  - Abortion spontaneous [Unknown]
